FAERS Safety Report 7559530-6 (Version None)
Quarter: 2011Q2

REPORT INFORMATION
  Report Type: 
  Country: None (occurrence: None)
  Receive Date: 20110617
  Receipt Date: 20110617
  Transmission Date: 20111010
  Serious: Yes (Death)
  Sender: FDA-Public Use
  Company Number: None

PATIENT
  Sex: Female
  Weight: 418 kg

DRUGS (1)
  1. SUNITINIB MALATE [Suspect]
     Dosage: 25MG QDX4WKS, Q6WKS PO
     Route: 048
     Dates: start: 20101110, end: 20110604

REACTIONS (1)
  - RENAL CANCER METASTATIC [None]
